FAERS Safety Report 8558480-6 (Version None)
Quarter: 2012Q3

REPORT INFORMATION
  Report Type: 
  Country: None (occurrence: None)
  Receive Date: 20120801
  Receipt Date: 20120723
  Transmission Date: 20120928
  Serious: Yes (Hospitalization, Other)
  Sender: FDA-Public Use
  Company Number: US-009507513-2011SP040934

PATIENT

DRUGS (1)
  1. NUVARING [Suspect]
     Indication: CONTRACEPTION
     Route: 067
     Dates: start: 20080801, end: 20080921

REACTIONS (17)
  - ERUCTATION [None]
  - DYSPEPSIA [None]
  - POLYP [None]
  - ROAD TRAFFIC ACCIDENT [None]
  - PULMONARY EMBOLISM [None]
  - SOFT TISSUE MASS [None]
  - DEEP VEIN THROMBOSIS [None]
  - NAUSEA [None]
  - NECK PAIN [None]
  - BACK PAIN [None]
  - HYPOKALAEMIA [None]
  - BRONCHIECTASIS [None]
  - DIARRHOEA [None]
  - VOMITING [None]
  - INCREASED BRONCHIAL SECRETION [None]
  - LUNG CYST [None]
  - PULMONARY PNEUMATOCELE [None]
